FAERS Safety Report 8092524-3 (Version None)
Quarter: 2011Q4

REPORT INFORMATION
  Report Type: 
  Country: None (occurrence: None)
  Receive Date: 20111222
  Receipt Date: 20111013
  Transmission Date: 20120403
  Serious: Yes (Hospitalization)
  Sender: FDA-Public Use
  Company Number: UTC-011221

PATIENT
  Age: 49 Year
  Sex: Female

DRUGS (4)
  1. TYVASO [Suspect]
     Indication: PULMONARY ARTERIAL HYPERTENSION
     Dosage: 18 - 54 MICROGRAMS, INHALATION
     Route: 055
     Dates: start: 20110315
  2. REVATIO (SILDENAFIL CITRATE) (UNKNOWN) [Concomitant]
  3. DIURETICS (DIURETICS) (UNKNOWN) [Concomitant]
  4. LETAIRIS (AMRISENTAN) (UNKNOWN) [Concomitant]

REACTIONS (1)
  - MYALGIA [None]
